FAERS Safety Report 10586049 (Version 2)
Quarter: 2014Q4

REPORT INFORMATION
  Report Type: Report from Study
  Country: CA (occurrence: CA)
  Receive Date: 20141115
  Receipt Date: 20141115
  Transmission Date: 20150529
  Serious: Yes (Death, Hospitalization, Disabling, Other)
  Sender: FDA-Public Use
  Company Number: CA-ASTRAZENECA-2012SE38162

PATIENT
  Age: 73 Year
  Sex: Male

DRUGS (12)
  1. ZOLADEX [Suspect]
     Active Substance: GOSERELIN ACETATE
     Indication: PROSTATE CANCER
     Route: 058
     Dates: start: 20111205
  2. COLACE [Concomitant]
     Active Substance: DOCUSATE SODIUM
  3. TYLENOL [Concomitant]
     Active Substance: ACETAMINOPHEN
     Dosage: 3 AS NEEDED
  4. BISACODYL. [Concomitant]
     Active Substance: BISACODYL
  5. ATENOLOL. [Concomitant]
     Active Substance: ATENOLOL
  6. LACTULOSE. [Concomitant]
     Active Substance: LACTULOSE
  7. MULTIVITAMINS [Concomitant]
     Active Substance: VITAMINS
  8. HYDROMORPH CODEINE [Concomitant]
  9. ZOLADEX [Suspect]
     Active Substance: GOSERELIN ACETATE
     Indication: PROSTATE CANCER
     Route: 058
     Dates: start: 20120305, end: 20140905
  10. LIPITOR [Concomitant]
     Active Substance: ATORVASTATIN CALCIUM
  11. OMNARIS [Concomitant]
     Active Substance: CICLESONIDE
     Route: 045
  12. SENNOKOT [Concomitant]

REACTIONS (7)
  - Hypoaesthesia [Not Recovered/Not Resolved]
  - Feeling abnormal [Not Recovered/Not Resolved]
  - Musculoskeletal discomfort [Not Recovered/Not Resolved]
  - Wheelchair user [Unknown]
  - Death [Fatal]
  - Upper respiratory tract infection [Not Recovered/Not Resolved]
  - Intestinal obstruction [Recovered/Resolved]

NARRATIVE: CASE EVENT DATE: 20120605
